FAERS Safety Report 9802996 (Version 2)
Quarter: 2014Q1

REPORT INFORMATION
  Report Type: Spontaneous
  Country: US (occurrence: US)
  Receive Date: 20140108
  Receipt Date: 20140108
  Transmission Date: 20141002
  Serious: Yes (Hospitalization)
  Sender: FDA-Public Use
  Company Number: US-ACCORD-021131

PATIENT
  Age: 3 Year
  Sex: Male

DRUGS (1)
  1. AMLODIPINE [Suspect]

REACTIONS (2)
  - Bradycardia [Unknown]
  - Accidental exposure to product by child [Unknown]
